FAERS Safety Report 14246542 (Version 2)
Quarter: 2018Q1

REPORT INFORMATION
  Report Type: Spontaneous
  Country: DE (occurrence: DE)
  Receive Date: 20171204
  Receipt Date: 20180104
  Transmission Date: 20180508
  Serious: Yes (Hospitalization)
  Sender: FDA-Public Use
  Company Number: PHHY2017DE175399

PATIENT
  Sex: Female

DRUGS (1)
  1. COSENTYX [Suspect]
     Active Substance: SECUKINUMAB
     Indication: ANKYLOSING SPONDYLITIS
     Dosage: 150 MG, QMO EVERY 4 WEEKS
     Route: 058
     Dates: start: 201607, end: 201711

REACTIONS (6)
  - Sinusitis [Unknown]
  - Pharyngitis [Recovering/Resolving]
  - Vasculitis necrotising [Recovering/Resolving]
  - Granulomatosis with polyangiitis [Recovering/Resolving]
  - Pharyngeal ulceration [Not Recovered/Not Resolved]
  - Inappropriate schedule of drug administration [Unknown]

NARRATIVE: CASE EVENT DATE: 201607
